FAERS Safety Report 16310868 (Version 3)
Quarter: 2020Q3

REPORT INFORMATION
  Report Type: Report from Study
  Country: KR (occurrence: KR)
  Receive Date: 20190514
  Receipt Date: 20200720
  Transmission Date: 20201102
  Serious: Yes (Death, Other)
  Sender: FDA-Public Use
  Company Number: KR-SA-2019SA131378

PATIENT

DRUGS (13)
  1. PHENIRAMINE [Concomitant]
     Active Substance: PHENIRAMINE
     Indication: HYPERSENSITIVITY
     Dosage: 4 MG
  2. OTERACIL [Suspect]
     Active Substance: OTERACIL
     Indication: GASTRIC CANCER STAGE III
  3. DEXAMETHASONE. [Concomitant]
     Active Substance: DEXAMETHASONE
     Indication: HYPERSENSITIVITY
     Dosage: 20 MG
  4. OTERACIL [Suspect]
     Active Substance: OTERACIL
     Indication: ADENOCARCINOMA GASTRIC
     Dosage: 35 MG/M2, BID ON DAYS 1 TO 14 OF EACH CYCLE
     Dates: start: 20121012, end: 20130402
  5. CURAN [Concomitant]
     Active Substance: RANITIDINE HYDROCHLORIDE
     Indication: HYPERSENSITIVITY
     Dosage: 50 MG
     Route: 065
  6. SOLU?CORTEF [Concomitant]
     Active Substance: HYDROCORTISONE SODIUM SUCCINATE
     Indication: HYPERSENSITIVITY
     Dosage: 100 MG
     Route: 042
  7. TEGAFUR [Suspect]
     Active Substance: TEGAFUR
     Indication: GASTRIC CANCER STAGE III
  8. GIMERACIL [Suspect]
     Active Substance: GIMERACIL
     Indication: ADENOCARCINOMA GASTRIC
     Dosage: 35 MG/M2, BID ON DAYS 1 TO 14 OF EACH CYCLE
     Dates: start: 20121012, end: 20130402
  9. GIMERACIL [Suspect]
     Active Substance: GIMERACIL
     Indication: GASTRIC CANCER STAGE III
  10. DOCETAXEL. [Suspect]
     Active Substance: DOCETAXEL
     Indication: GASTRIC CANCER STAGE III
  11. TEGAFUR [Suspect]
     Active Substance: TEGAFUR
     Indication: ADENOCARCINOMA GASTRIC
     Dosage: 35 MG/M2, BID ON DAYS 1 TO 14 OF EACH CYCLE
     Route: 048
     Dates: start: 20121012, end: 20130402
  12. NORMAL SALINE [Concomitant]
     Active Substance: SODIUM CHLORIDE
     Dosage: 100 ML
     Route: 042
  13. DOCETAXEL. [Suspect]
     Active Substance: DOCETAXEL
     Indication: ADENOCARCINOMA GASTRIC
     Dosage: 35 MG/M2, QCY DAYS 1 AND 8 OF EACH CYCLE
     Route: 042
     Dates: start: 20121012, end: 20130402

REACTIONS (4)
  - Embolism [Fatal]
  - Bradycardia [Unknown]
  - Dyspnoea [Unknown]
  - Condition aggravated [Unknown]

NARRATIVE: CASE EVENT DATE: 20130327
